FAERS Safety Report 5119716-7 (Version None)
Quarter: 2006Q3

REPORT INFORMATION
  Report Type: 
  Country: None (occurrence: None)
  Receive Date: 20060929
  Receipt Date: 20060915
  Transmission Date: 20061208
  Serious: Yes (Other)
  Sender: FDA-Public Use
  Company Number: 14809

PATIENT
  Sex: Female

DRUGS (3)
  1. PAMIDRONATE DISODIUM [Suspect]
     Indication: HYPERCALCAEMIA
     Dosage: 90 MG ONCE
     Dates: start: 20060817, end: 20060817
  2. PAMIDRONATE DISODIUM [Suspect]
     Indication: HYPERCALCAEMIA
     Dosage: 30 MG ONCE
     Dates: start: 20060831, end: 20060831
  3. PAMIDRONATE DISODIUM [Suspect]
     Indication: HYPERCALCAEMIA
     Dosage: 15 MG ONCE
     Dates: start: 20060903, end: 20060903

REACTIONS (1)
  - HYPERCALCAEMIA [None]
